FAERS Safety Report 23416350 (Version 1)
Quarter: 2024Q1

REPORT INFORMATION
  Report Type: Spontaneous
  Country: US (occurrence: None)
  Receive Date: 20240117
  Receipt Date: 20240117
  Transmission Date: 20240409
  Serious: No
  Sender: FDA-Public Use
  Company Number: None

PATIENT
  Sex: Female

DRUGS (1)
  1. HUMIRA [Suspect]
     Active Substance: ADALIMUMAB
     Dosage: OTHER FREQUENCY : EVERY OTHER WEEK;?
     Route: 058

REACTIONS (4)
  - Mood altered [None]
  - Anger [None]
  - Depressed mood [None]
  - Feeling abnormal [None]
